FAERS Safety Report 6227083-0 (Version None)
Quarter: 2009Q2

REPORT INFORMATION
  Report Type: 
  Country: None (occurrence: None)
  Receive Date: 20090612
  Receipt Date: 20090527
  Transmission Date: 20091009
  Serious: No
  Sender: FDA-Public Use
  Company Number: US-ABBOTT-09P-163-0576374-00

PATIENT
  Sex: Female

DRUGS (2)
  1. HUMIRA [Suspect]
     Indication: JUVENILE ARTHRITIS
  2. REMICADE [Concomitant]
     Indication: JUVENILE ARTHRITIS

REACTIONS (2)
  - GENERALISED OEDEMA [None]
  - URTICARIA [None]
